FAERS Safety Report 7141154-6 (Version None)
Quarter: 2010Q4

REPORT INFORMATION
  Report Type: 
  Country: None (occurrence: None)
  Receive Date: 20101122
  Receipt Date: 20101112
  Transmission Date: 20110411
  Serious: Yes (Hospitalization)
  Sender: FDA-Public Use
  Company Number: 2010US002020

PATIENT
  Age: 49 Year
  Sex: Male
  Weight: 122 kg

DRUGS (2)
  1. AMEVIVE [Suspect]
     Indication: PSORIASIS
     Dosage: 12.5 MG, WEEKLY, INTRAMUSCULAR
     Route: 030
     Dates: start: 20050113, end: 20050912
  2. ENBREL [Concomitant]

REACTIONS (5)
  - CHOLECYSTECTOMY [None]
  - DRUG INEFFECTIVE [None]
  - JEJUNOSTOMY [None]
  - PANCREATITIS [None]
  - POST PROCEDURAL COMPLICATION [None]
